FAERS Safety Report 14818464 (Version 3)
Quarter: 2018Q2

REPORT INFORMATION
  Report Type: Spontaneous
  Country: US (occurrence: US)
  Receive Date: 20180427
  Receipt Date: 20180523
  Transmission Date: 20180711
  Serious: Yes (Hospitalization, Other)
  Sender: FDA-Public Use
  Company Number: US-ASTELLAS-2018US017170

PATIENT
  Age: 66 Year
  Sex: Male

DRUGS (2)
  1. XTANDI [Suspect]
     Active Substance: ENZALUTAMIDE
     Indication: PROSTATE CANCER
     Route: 048
     Dates: start: 20180314
  2. XTANDI [Suspect]
     Active Substance: ENZALUTAMIDE
     Dosage: 160 UNK, UNK
     Route: 048

REACTIONS (7)
  - Atrial fibrillation [Recovering/Resolving]
  - Chest pain [Recovering/Resolving]
  - Hot flush [Unknown]
  - Heart rate increased [Unknown]
  - Blood pressure abnormal [Unknown]
  - Somnolence [Not Recovered/Not Resolved]
  - Diarrhoea [Recovering/Resolving]

NARRATIVE: CASE EVENT DATE: 20180419
